FAERS Safety Report 5504009-6 (Version None)
Quarter: 2007Q4

REPORT INFORMATION
  Report Type: 
  Country: None (occurrence: None)
  Receive Date: 20071030
  Receipt Date: 20071016
  Transmission Date: 20080405
  Serious: Yes (Death)
  Sender: FDA-Public Use
  Company Number: 154

PATIENT
  Sex: Male

DRUGS (7)
  1. FAZACLO ODT [Suspect]
     Indication: BIPOLAR DISORDER
     Dosage: 25 MG PO DAILY
     Route: 048
     Dates: start: 20070913, end: 20071012
  2. ABILIFY [Concomitant]
  3. LEXAPRO [Concomitant]
  4. RITALIN [Concomitant]
  5. SEROQUEL [Concomitant]
  6. ATIVAN (PRN) [Concomitant]
  7. TOPROL-XL [Concomitant]

REACTIONS (2)
  - COMPLETED SUICIDE [None]
  - OVERDOSE [None]
